FAERS Safety Report 5842178-9 (Version None)
Quarter: 2008Q3

REPORT INFORMATION
  Report Type: 
  Country: None (occurrence: None)
  Receive Date: 20080812
  Receipt Date: 20080730
  Transmission Date: 20090109
  Serious: Yes (Other)
  Sender: FDA-Public Use
  Company Number: JP-ROCHE-538774

PATIENT
  Sex: Female
  Weight: 19 kg

DRUGS (8)
  1. TAMIFLU [Suspect]
     Indication: INFLUENZA
     Dosage: DRUG REPORTED AS: TAMIFLU DRY SYRUP 3%
     Route: 048
     Dates: start: 20071211, end: 20071211
  2. CLARITHROMYCIN [Concomitant]
     Route: 048
     Dates: start: 20071211, end: 20071211
  3. BIOFERMIN [Concomitant]
     Route: 048
     Dates: start: 20071211, end: 20071211
  4. ASVERIN [Concomitant]
     Route: 048
     Dates: start: 20071211, end: 20071211
  5. MUCODYNE [Concomitant]
     Route: 048
     Dates: start: 20071211, end: 20071212
  6. ZADITEN [Concomitant]
     Route: 048
     Dates: start: 20071211, end: 20071211
  7. HOKUNALIN [Concomitant]
     Dosage: ROUTE REPORTED AS TAPE
     Route: 062
     Dates: start: 20071211, end: 20071211
  8. ANHIBA [Concomitant]
     Route: 054
     Dates: start: 20071211, end: 20071211

REACTIONS (1)
  - ABNORMAL BEHAVIOUR [None]
